FAERS Safety Report 9016484 (Version 8)
Quarter: 2013Q1

REPORT INFORMATION
  Report Type: Spontaneous
  Country: US (occurrence: US)
  Receive Date: 20130116
  Receipt Date: 20130304
  Transmission Date: 20140127
  Serious: Yes (Death)
  Sender: FDA-Public Use
  Company Number: US-JNJFOC-20130106287

PATIENT
  Age: 77 Year
  Sex: Male
  Weight: 93.44 kg

DRUGS (12)
  1. XARELTO [Suspect]
     Indication: CEREBROVASCULAR ACCIDENT PROPHYLAXIS
     Dosage: DOSAGE: QD, 90 DAYS, 2
     Route: 048
     Dates: start: 20120731
  2. XARELTO [Suspect]
     Indication: ATRIAL FIBRILLATION
     Dosage: DOSAGE: QD, 90 DAYS, 2
     Route: 048
     Dates: start: 20120731
  3. ADVAIR [Concomitant]
     Dosage: 100-50, QAM
     Route: 065
  4. CENTRUM SILVER [Concomitant]
     Route: 065
  5. CRESTOR [Concomitant]
     Dosage: 20
     Route: 065
  6. FEXOFENADINE [Concomitant]
     Route: 065
  7. METFORMIN ER [Concomitant]
     Dosage: QPM
     Route: 065
  8. SOLARAZE [Concomitant]
     Route: 065
  9. NITROSTAT [Concomitant]
     Dosage: DOSAGE: 30 DAYS
     Route: 065
  10. METOPROLOL SUCCINATE [Concomitant]
     Dosage: QAM, DOSAGE: 90 DAYS, 2
     Route: 065
  11. NASONEX [Concomitant]
     Route: 065
  12. NEXIUM [Concomitant]
     Route: 065

REACTIONS (1)
  - Haemorrhage intracranial [Fatal]
